FAERS Safety Report 16307670 (Version 2)
Quarter: 2019Q2

REPORT INFORMATION
  Report Type: Spontaneous
  Country: US (occurrence: US)
  Receive Date: 20190514
  Receipt Date: 20190621
  Transmission Date: 20190711
  Serious: Yes (Other)
  Sender: FDA-Public Use
  Company Number: US-ASTRAZENECA-2019SE71092

PATIENT
  Age: 20302 Day
  Weight: 146.5 kg

DRUGS (1)
  1. SYMBICORT [Suspect]
     Active Substance: BUDESONIDE\FORMOTEROL FUMARATE DIHYDRATE
     Indication: CHRONIC OBSTRUCTIVE PULMONARY DISEASE
     Dosage: 80/4.5MCG 2 PUFFS TWO TIMES A DAY
     Route: 055
     Dates: start: 2018

REACTIONS (12)
  - Dyspnoea [Unknown]
  - Device breakage [Unknown]
  - Gait disturbance [Unknown]
  - Drug ineffective [Unknown]
  - Heart rate increased [Unknown]
  - Device issue [Unknown]
  - Lung disorder [Unknown]
  - Overweight [Unknown]
  - Incorrect dose administered [Unknown]
  - Wrong technique in device usage process [Unknown]
  - Off label use [Unknown]
  - Intentional device misuse [Unknown]

NARRATIVE: CASE EVENT DATE: 20190504
